FAERS Safety Report 16856512 (Version 1)
Quarter: 2019Q3

REPORT INFORMATION
  Report Type: Spontaneous
  Country: RS (occurrence: RS)
  Receive Date: 20190926
  Receipt Date: 20190926
  Transmission Date: 20191005
  Serious: Yes (Other)
  Sender: FDA-Public Use
  Company Number: PHHY2019RS220965

PATIENT
  Age: 34 Year
  Sex: Female

DRUGS (4)
  1. AMLODIPINE [Concomitant]
     Active Substance: AMLODIPINE BESYLATE
     Indication: HYPERTENSION
     Route: 065
  2. METHYLDOPA. [Concomitant]
     Active Substance: METHYLDOPA
     Indication: RHEUMATOID ARTHRITIS
     Dosage: UNK
     Route: 065
  3. ETANERCEPT [Suspect]
     Active Substance: ETANERCEPT
     Indication: RHEUMATOID ARTHRITIS
     Dosage: 50 MG, QW
     Route: 058
  4. BISOPROLOL [Concomitant]
     Active Substance: BISOPROLOL
     Indication: HYPERTENSION
     Route: 065

REACTIONS (5)
  - Hereditary angioedema [Recovered/Resolved]
  - Abortion spontaneous [Unknown]
  - Rheumatoid arthritis [Unknown]
  - Maternal exposure during pregnancy [Unknown]
  - Laryngeal oedema [Unknown]
